FAERS Safety Report 25858956 (Version 1)
Quarter: 2025Q3

REPORT INFORMATION
  Report Type: Spontaneous
  Country: KR (occurrence: KR)
  Receive Date: 20250929
  Receipt Date: 20250929
  Transmission Date: 20251020
  Serious: Yes (Other)
  Sender: MYLAN
  Company Number: KR-MYLANLABS-2025M1081706

PATIENT
  Age: 78 Year
  Sex: Male

DRUGS (4)
  1. LYRICA [Suspect]
     Active Substance: PREGABALIN
     Indication: Vertigo positional
     Dosage: 150 MILLIGRAM, BID (12 HOURS)
     Dates: start: 20211223, end: 20220316
  2. LYRICA [Suspect]
     Active Substance: PREGABALIN
     Dosage: 150 MILLIGRAM, BID (12 HOURS)
     Route: 048
     Dates: start: 20211223, end: 20220316
  3. LYRICA [Suspect]
     Active Substance: PREGABALIN
     Dosage: 150 MILLIGRAM, BID (12 HOURS)
     Route: 048
     Dates: start: 20211223, end: 20220316
  4. LYRICA [Suspect]
     Active Substance: PREGABALIN
     Dosage: 150 MILLIGRAM, BID (12 HOURS)
     Dates: start: 20211223, end: 20220316

REACTIONS (3)
  - Angioedema [Recovered/Resolved]
  - Oedema [Recovered/Resolved]
  - Product use in unapproved indication [Unknown]

NARRATIVE: CASE EVENT DATE: 20211223
